FAERS Safety Report 24709164 (Version 1)
Quarter: 2024Q4

REPORT INFORMATION
  Report Type: Spontaneous
  Country: US (occurrence: US)
  Receive Date: 20241208
  Receipt Date: 20241208
  Transmission Date: 20250114
  Serious: No
  Sender: APOTEX
  Company Number: US-APOTEX-2024AP019108

PATIENT
  Age: 16 Year
  Sex: Male

DRUGS (20)
  1. TIGECYCLINE [Suspect]
     Active Substance: TIGECYCLINE
     Indication: Atypical mycobacterial infection
     Dosage: UNK
     Route: 065
     Dates: start: 201609, end: 201703
  2. TIGECYCLINE [Suspect]
     Active Substance: TIGECYCLINE
     Indication: Lung disorder
     Dosage: UNK
     Route: 065
     Dates: start: 201801, end: 2018
  3. TIGECYCLINE [Suspect]
     Active Substance: TIGECYCLINE
     Dosage: UNK
     Route: 065
     Dates: start: 2019, end: 2019
  4. AZITHROMYCIN [Concomitant]
     Active Substance: AZITHROMYCIN
     Indication: Atypical mycobacterial infection
     Dosage: UNK
     Route: 065
     Dates: start: 201609
  5. AZITHROMYCIN [Concomitant]
     Active Substance: AZITHROMYCIN
     Indication: Lung disorder
  6. CLOFAZIMINE [Concomitant]
     Active Substance: CLOFAZIMINE
     Indication: Atypical mycobacterial infection
     Dosage: UNK
     Route: 065
     Dates: start: 201703
  7. CLOFAZIMINE [Concomitant]
     Active Substance: CLOFAZIMINE
     Indication: Lung disorder
  8. BEDAQUILINE [Concomitant]
     Active Substance: BEDAQUILINE
     Indication: Atypical mycobacterial infection
     Dosage: UNK
     Route: 065
     Dates: start: 2019
  9. BEDAQUILINE [Concomitant]
     Active Substance: BEDAQUILINE
     Indication: Lung disorder
  10. IMIPENEM [Concomitant]
     Active Substance: IMIPENEM
     Indication: Atypical mycobacterial infection
     Dosage: UNK
     Route: 065
     Dates: start: 201609, end: 201703
  11. IMIPENEM [Concomitant]
     Active Substance: IMIPENEM
     Indication: Lung disorder
     Dosage: UNK
     Route: 065
     Dates: start: 201801, end: 2018
  12. IMIPENEM [Concomitant]
     Active Substance: IMIPENEM
     Dosage: UNK
     Route: 065
     Dates: start: 2019, end: 2019
  13. IMIPENEM [Concomitant]
     Active Substance: IMIPENEM
     Dosage: UNK
     Route: 065
     Dates: start: 202001, end: 2020
  14. AMIKACIN [Concomitant]
     Active Substance: AMIKACIN
     Indication: Atypical mycobacterial infection
     Dosage: UNK
     Route: 065
     Dates: start: 201703, end: 201812
  15. AMIKACIN [Concomitant]
     Active Substance: AMIKACIN
     Indication: Lung disorder
     Dosage: UNK
     Route: 065
     Dates: start: 2019, end: 202001
  16. AMIKACIN [Concomitant]
     Active Substance: AMIKACIN
     Dosage: UNK
     Route: 065
     Dates: start: 2020, end: 202111
  17. AMIKACIN [Concomitant]
     Active Substance: AMIKACIN
     Indication: Atypical mycobacterial infection
     Dosage: UNK
     Route: 042
     Dates: start: 201901, end: 2019
  18. AMIKACIN [Concomitant]
     Active Substance: AMIKACIN
     Indication: Lung disorder
  19. AVIBACTAM SODIUM\CEFTAZIDIME [Concomitant]
     Active Substance: AVIBACTAM SODIUM\CEFTAZIDIME
     Indication: Atypical mycobacterial infection
     Dosage: UNK
     Route: 065
     Dates: start: 201901, end: 2019
  20. AVIBACTAM SODIUM\CEFTAZIDIME [Concomitant]
     Active Substance: AVIBACTAM SODIUM\CEFTAZIDIME
     Indication: Lung disorder

REACTIONS (1)
  - Pyrexia [Unknown]
